FAERS Safety Report 17869909 (Version 1)
Quarter: 2020Q2

REPORT INFORMATION
  Report Type: Report from Study
  Country: US (occurrence: US)
  Receive Date: 20200608
  Receipt Date: 20200608
  Transmission Date: 20200714
  Serious: Yes (Death, Hospitalization)
  Sender: FDA-Public Use
  Company Number: US-EISAI MEDICAL RESEARCH-EC-2020-074893

PATIENT
  Age: 61 Year
  Sex: Female
  Weight: 88 kg

DRUGS (2)
  1. LENVIMA [Suspect]
     Active Substance: LENVATINIB
     Indication: NEOPLASM MALIGNANT
     Route: 048
     Dates: start: 20200304, end: 20200421
  2. LENVIMA [Suspect]
     Active Substance: LENVATINIB
     Indication: ENDOMETRIAL CANCER

REACTIONS (7)
  - Cardiorenal syndrome [Fatal]
  - Lethargy [Fatal]
  - Hypotension [Fatal]
  - Cardiogenic shock [Fatal]
  - Dyspnoea [Fatal]
  - Ischaemic hepatitis [Fatal]
  - Asthenia [Fatal]

NARRATIVE: CASE EVENT DATE: 20200412
